FAERS Safety Report 5576720-2 (Version None)
Quarter: 2007Q4

REPORT INFORMATION
  Report Type: 
  Country: None (occurrence: None)
  Receive Date: 20071228
  Receipt Date: 20071221
  Transmission Date: 20080405
  Serious: Yes (Death, Congenital Anomaly)
  Sender: FDA-Public Use
  Company Number: FR-ABBOTT-07P-056-0430002-00

PATIENT

DRUGS (4)
  1. DEPAKOTE [Suspect]
     Indication: DRUG EXPOSURE DURING PREGNANCY
     Route: 064
  2. VENLAFAXIINE HCL [Suspect]
     Indication: DRUG EXPOSURE DURING PREGNANCY
     Route: 064
  3. CYAMEMAZINE [Suspect]
     Indication: DRUG EXPOSURE DURING PREGNANCY
     Route: 064
  4. CHLORPROMAZINE HYDROCHLORIDE [Concomitant]
     Indication: DRUG EXPOSURE DURING PREGNANCY
     Route: 064

REACTIONS (7)
  - ABORTION INDUCED [None]
  - CONGENITAL MUSCULOSKELETAL ANOMALY [None]
  - FOETAL GROWTH RETARDATION [None]
  - MACROCEPHALY [None]
  - RENAL APLASIA [None]
  - SPINA BIFIDA [None]
  - TALIPES [None]
